FAERS Safety Report 13996360 (Version 4)
Quarter: 2017Q4

REPORT INFORMATION
  Report Type: Report from Study
  Country: US (occurrence: US)
  Receive Date: 20170921
  Receipt Date: 20171123
  Transmission Date: 20180321
  Serious: Yes (Hospitalization, Other)
  Sender: FDA-Public Use
  Company Number: US-ROCHE-1985932

PATIENT
  Age: 42 Year
  Sex: Male
  Weight: 85.9 kg

DRUGS (51)
  1. ETOPOSIDE. [Suspect]
     Active Substance: ETOPOSIDE
     Indication: DIFFUSE LARGE B-CELL LYMPHOMA
     Dosage: CYCLE 1
     Route: 042
     Dates: start: 20170719
  2. MESNA. [Suspect]
     Active Substance: MESNA
     Dosage: CYCLE 2 OVER 24HRS, DAY 2 TO 3?DATE OF MOST RECENT DOSE OF IFOSFAMIDE: 11/AUG/2017
     Route: 042
     Dates: start: 20170810
  3. ALLOPURINOL. [Concomitant]
     Active Substance: ALLOPURINOL
     Route: 048
  4. CIPRO [Concomitant]
     Active Substance: CIPROFLOXACIN HYDROCHLORIDE
     Route: 048
  5. TESSALON [Concomitant]
     Active Substance: BENZONATATE
  6. VENETOCLAX. [Suspect]
     Active Substance: VENETOCLAX
     Dosage: CYCLE 3, DAILY FOR 10 DAYS?MOST RECENT DOSE OF VENETOCLAX: 28/SEP/2017?MOST RECENT DOSE OF VENETOCLA
     Route: 048
     Dates: start: 20170919
  7. CARBOPLATIN. [Suspect]
     Active Substance: CARBOPLATIN
     Dosage: CYCLE 3, RECEIVED ON DAY 2?DATE OF MOST RECENT DOSE OF CARBOPLATIN : 11/AUG/2017
     Route: 042
     Dates: start: 20170920
  8. IFOSFAMIDE. [Suspect]
     Active Substance: IFOSFAMIDE
     Indication: DIFFUSE LARGE B-CELL LYMPHOMA
     Dosage: CYCLE 1
     Route: 042
     Dates: start: 20170719
  9. MESNA. [Suspect]
     Active Substance: MESNA
     Indication: PRODUCT USED FOR UNKNOWN INDICATION
     Dosage: CYCLE 1
     Route: 042
     Dates: start: 20170719
  10. MESNA. [Suspect]
     Active Substance: MESNA
     Dosage: 4 HRS AFTER COMPLETION OF IFOSFAMIDE ON DAY 3
     Route: 042
  11. MESNA. [Suspect]
     Active Substance: MESNA
     Dosage: 4 HRS AFTER COMPLETION OF IFOSFAMIDE ON DAY 3
     Route: 042
  12. LOVENOX [Concomitant]
     Active Substance: ENOXAPARIN SODIUM
     Indication: VENA CAVA THROMBOSIS
     Route: 065
     Dates: start: 201607
  13. BENZONATATE. [Concomitant]
     Active Substance: BENZONATATE
     Indication: COUGH
     Dosage: AS NEEDED
     Route: 048
  14. VENETOCLAX. [Suspect]
     Active Substance: VENETOCLAX
     Indication: DIFFUSE LARGE B-CELL LYMPHOMA
     Dosage: CYCLE 1?MOST RECENT DOSE OF VENETOCLAX: 18/AUG/2017
     Route: 048
     Dates: start: 20170719
  15. CARBOPLATIN. [Suspect]
     Active Substance: CARBOPLATIN
     Dosage: CYCLE 2, RECEIVED ON DAY 3?DATE OF MOST RECENT DOSE OF CARBOPLATIN : 11/AUG/2017
     Route: 042
     Dates: start: 20170811
  16. ETOPOSIDE. [Suspect]
     Active Substance: ETOPOSIDE
     Dosage: CYCLE 2, DAYS 1-3?MOST DOSE DOSE RECEIVED ON: 11/AUG/2017
     Route: 042
     Dates: start: 20170809
  17. K+ TABS [Concomitant]
     Dosage: EXTENDED RELEASE?2 TABLET
     Route: 065
     Dates: start: 20170926
  18. AMIODARONE [Concomitant]
     Active Substance: AMIODARONE
  19. MIDAZOLAM [Concomitant]
     Active Substance: MIDAZOLAM HYDROCHLORIDE
     Route: 042
  20. BENZONATATE. [Concomitant]
     Active Substance: BENZONATATE
     Route: 048
  21. ETOPOSIDE. [Suspect]
     Active Substance: ETOPOSIDE
     Dosage: CYCLE 23 DAYS 1-3?MOST DOSE DOSE RECEIVED ON: 21/SEP/2017
     Route: 042
     Dates: start: 20170919
  22. DEPAKOTE [Concomitant]
     Active Substance: DIVALPROEX SODIUM
     Indication: BIPOLAR DISORDER
     Route: 065
     Dates: start: 20170829
  23. NYSTATIN. [Concomitant]
     Active Substance: NYSTATIN
     Dosage: 100000 UNITS/ML
     Route: 048
     Dates: start: 20170926
  24. URSODIOL. [Concomitant]
     Active Substance: URSODIOL
     Route: 048
  25. VANCOMYCIN [Concomitant]
     Active Substance: VANCOMYCIN
  26. RITUXIMAB. [Suspect]
     Active Substance: RITUXIMAB
     Indication: DIFFUSE LARGE B-CELL LYMPHOMA
     Dosage: CYCLE 1
     Route: 042
     Dates: start: 20170719
  27. CARBOPLATIN. [Suspect]
     Active Substance: CARBOPLATIN
     Indication: DIFFUSE LARGE B-CELL LYMPHOMA
     Dosage: CYCLE 1
     Route: 042
     Dates: start: 20170719
  28. MAGNESIUM OXIDE. [Concomitant]
     Active Substance: MAGNESIUM OXIDE
     Route: 065
     Dates: start: 20170929
  29. OXYCODONE [Concomitant]
     Active Substance: OXYCODONE
     Indication: PAIN IN EXTREMITY
     Dosage: AS NEEDED
     Route: 048
     Dates: start: 20170923
  30. LOVENOX [Concomitant]
     Active Substance: ENOXAPARIN SODIUM
     Route: 065
  31. PEGFILGRASTIM [Concomitant]
     Active Substance: PEGFILGRASTIM
     Route: 065
     Dates: start: 20170923
  32. VENETOCLAX. [Suspect]
     Active Substance: VENETOCLAX
     Dosage: CYCLE DAY 26 CYCLE 2?MOST RECENT DOSE OF VENETOCLAX: 18/AUG/2017?MOST RECENT DOSE OF VENETOCLAX: 25/
     Route: 048
     Dates: start: 20170809
  33. PHENYLEPHRINE [Concomitant]
     Active Substance: PHENYLEPHRINE\PHENYLEPHRINE HYDROCHLORIDE
     Indication: HAEMORRHOIDS
     Route: 065
  34. NOREPINEPHRINE. [Concomitant]
     Active Substance: NOREPINEPHRINE
     Dosage: 8 MG/D5W 250 ML
     Route: 042
  35. MAGNESIUM HYDROXIDE. [Concomitant]
     Active Substance: MAGNESIUM HYDROXIDE
     Route: 048
  36. IFOSFAMIDE. [Suspect]
     Active Substance: IFOSFAMIDE
     Dosage: CYCLE 2 OVER 24 HRS, DAY 2 TO DAY 3?MOST DOSE DOSE RECEIVED ON: 11/AUG/2017
     Route: 042
     Dates: start: 20170810
  37. IFOSFAMIDE. [Suspect]
     Active Substance: IFOSFAMIDE
     Dosage: CYCLE 3 OVER 24 HRS, DAY 2 TO DAY 3?MOST DOSE DOSE RECEIVED ON: 21/SEP/2017
     Route: 042
     Dates: start: 20170920
  38. NACL [Concomitant]
     Active Substance: SODIUM CHLORIDE
     Route: 042
  39. ONDANSETRON [Concomitant]
     Active Substance: ONDANSETRON
     Route: 048
  40. SPIRIVA [Concomitant]
     Active Substance: TIOTROPIUM BROMIDE MONOHYDRATE
  41. RITUXIMAB. [Suspect]
     Active Substance: RITUXIMAB
     Dosage: CYCLE 2
     Route: 042
     Dates: start: 20170809
  42. RITUXIMAB. [Suspect]
     Active Substance: RITUXIMAB
     Dosage: CYCLE 3
     Route: 042
     Dates: start: 20170919
  43. MESNA. [Suspect]
     Active Substance: MESNA
     Dosage: CYCLE 3 OVER 24HRS, DAY 2 TO 3?DATE OF MOST RECENT DOSE OF IFOSFAMIDE: 21/SEP/2017
     Route: 042
     Dates: start: 20170920
  44. OXYCODONE [Concomitant]
     Active Substance: OXYCODONE
     Indication: BACK PAIN
  45. LORATADINE. [Concomitant]
     Active Substance: LORATADINE
     Route: 048
     Dates: start: 20170902
  46. LOPERAMIDE [Concomitant]
     Active Substance: LOPERAMIDE
     Indication: DIARRHOEA
     Dosage: AS NEEDED
     Route: 048
  47. EPINEPHRINE. [Concomitant]
     Active Substance: EPINEPHRINE
     Dosage: 4 MG/D5W 250 ML
     Route: 042
  48. FENTANYL. [Concomitant]
     Active Substance: FENTANYL
     Route: 042
  49. VASOPRESSIN. [Concomitant]
     Active Substance: VASOPRESSIN
     Dosage: 40 UNITS
     Route: 042
  50. ACETAMINOPHEN. [Concomitant]
     Active Substance: ACETAMINOPHEN
     Route: 048
  51. PEGFILGRASTIM [Concomitant]
     Active Substance: PEGFILGRASTIM
     Route: 065

REACTIONS (5)
  - Thrombocytopenia [Unknown]
  - Pancytopenia [Recovering/Resolving]
  - Lung infection [Not Recovered/Not Resolved]
  - Febrile neutropenia [Unknown]
  - Neutropenia [Unknown]

NARRATIVE: CASE EVENT DATE: 20170825
